FAERS Safety Report 26055156 (Version 1)
Quarter: 2025Q4

REPORT INFORMATION
  Report Type: Spontaneous
  Country: US (occurrence: None)
  Receive Date: 20251117
  Receipt Date: 20251117
  Transmission Date: 20260117
  Serious: No
  Sender: FDA-CTU
  Company Number: None

PATIENT
  Age: 70 Year
  Sex: Male

DRUGS (2)
  1. XDEMVY [Suspect]
     Active Substance: LOTILANER
     Indication: Ocular demodicosis
     Dosage: 1 GTT DROP(S)  TWICE A DAY OPHTHALMIC ?
     Route: 047
  2. ALLOPURINOL [Suspect]
     Active Substance: ALLOPURINOL
     Dates: start: 20250806

REACTIONS (2)
  - Blood parathyroid hormone increased [None]
  - Dry eye [None]

NARRATIVE: CASE EVENT DATE: 20251117
